FAERS Safety Report 10152628 (Version 1)
Quarter: 2014Q2

REPORT INFORMATION
  Report Type: Spontaneous
  Country: US (occurrence: None)
  Receive Date: 20140502
  Receipt Date: 20140502
  Transmission Date: 20141212
  Serious: No
  Sender: FDA-Public Use
  Company Number: None

PATIENT
  Age: 48 Year
  Sex: Male
  Weight: 88.3 kg

DRUGS (1)
  1. CISPLATIN [Suspect]
     Dates: start: 20140421

REACTIONS (2)
  - Hyponatraemia [None]
  - Lymphocyte count decreased [None]
